FAERS Safety Report 7198900-5 (Version None)
Quarter: 2010Q4

REPORT INFORMATION
  Report Type: 
  Country: None (occurrence: None)
  Receive Date: 20101227
  Receipt Date: 20101217
  Transmission Date: 20110411
  Serious: Yes (Hospitalization)
  Sender: FDA-Public Use
  Company Number: NL-AMGEN-NLDSP2010011175

PATIENT

DRUGS (1)
  1. ENBREL [Suspect]
     Indication: PRODUCT USED FOR UNKNOWN INDICATION
     Dosage: 50 MG, 2X/WEEK
     Route: 058
     Dates: end: 20101201

REACTIONS (7)
  - BLOOD PRESSURE ABNORMAL [None]
  - CONSTIPATION [None]
  - DYSPEPSIA [None]
  - DYSPNOEA [None]
  - FATIGUE [None]
  - HYPOKINESIA [None]
  - OEDEMA PERIPHERAL [None]
